FAERS Safety Report 6633000-1 (Version None)
Quarter: 2010Q1

REPORT INFORMATION
  Report Type: 
  Country: None (occurrence: None)
  Receive Date: 20100312
  Receipt Date: 20100305
  Transmission Date: 20100710
  Serious: Yes (Other)
  Sender: FDA-Public Use
  Company Number: DE-TEVA-224895ISR

PATIENT
  Sex: Female

DRUGS (1)
  1. COPAXONE [Suspect]
     Indication: MULTIPLE SCLEROSIS
     Route: 058
     Dates: start: 20100212, end: 20100217

REACTIONS (7)
  - CHEST DISCOMFORT [None]
  - DYSPNOEA [None]
  - FACE OEDEMA [None]
  - GINGIVAL PAIN [None]
  - OEDEMA PERIPHERAL [None]
  - PULMONARY OEDEMA [None]
  - SWELLING FACE [None]
